FAERS Safety Report 7039049-1 (Version None)
Quarter: 2010Q4

REPORT INFORMATION
  Report Type: 
  Country: None (occurrence: None)
  Receive Date: 20101012
  Receipt Date: 20101004
  Transmission Date: 20110411
  Serious: Yes (Death)
  Sender: FDA-Public Use
  Company Number: US-ELI_LILLY_AND_COMPANY-US201009002961

PATIENT
  Sex: Female

DRUGS (14)
  1. FORTEO [Suspect]
     Indication: OSTEOPOROSIS
     Dosage: 20 UG, DAILY (1/D)
     Route: 065
  2. CALTRATE D                         /00944201/ [Concomitant]
  3. VITAMIN D [Concomitant]
  4. MEVACOR [Concomitant]
  5. DIORON [Concomitant]
  6. ACETYLCYSTEINE [Concomitant]
  7. OMEPRAZOLE [Concomitant]
  8. PREDNISONE [Concomitant]
     Indication: LUNG DISORDER
     Dosage: 20 MG, DAILY (1/D)
  9. LASIX [Concomitant]
  10. OXYGEN [Concomitant]
  11. PLAVIX [Concomitant]
  12. METOPROLOL [Concomitant]
  13. GABAPENTIN [Concomitant]
  14. POTASSIUM [Concomitant]

REACTIONS (3)
  - CARDIAC FAILURE [None]
  - CORONARY ARTERY DISEASE [None]
  - MALAISE [None]
